FAERS Safety Report 25141247 (Version 1)
Quarter: 2025Q2

REPORT INFORMATION
  Report Type: Spontaneous
  Country: US (occurrence: None)
  Receive Date: 20250330
  Receipt Date: 20250330
  Transmission Date: 20250716
  Serious: No
  Sender: FDA-CTU
  Company Number: None

PATIENT
  Age: 21 Year
  Sex: Male

DRUGS (1)
  1. GLYCERIN\PROPYLENE GLYCOL [Suspect]
     Active Substance: GLYCERIN\PROPYLENE GLYCOL
     Indication: Dry eye
     Route: 047
     Dates: start: 20250329, end: 20250330

REACTIONS (1)
  - Headache [None]

NARRATIVE: CASE EVENT DATE: 20250330
